FAERS Safety Report 6971343-2 (Version None)
Quarter: 2010Q3

REPORT INFORMATION
  Report Type: 
  Country: None (occurrence: None)
  Receive Date: 20100908
  Receipt Date: 20100827
  Transmission Date: 20110219
  Serious: Yes (Other)
  Sender: FDA-Public Use
  Company Number: PHHY2010BR57173

PATIENT
  Age: 67 Year
  Sex: Female

DRUGS (4)
  1. VOLTAREN [Suspect]
     Indication: ARTHROPATHY
     Dosage: 50MG
     Route: 048
  2. VOLTAREN [Suspect]
     Indication: MENISCUS LESION
  3. OMEPRAZOLE [Concomitant]
     Dosage: USED ONLY FOR 3 DAYS
  4. ENALAPRIL MALEATE [Concomitant]
     Indication: HYPERTENSION

REACTIONS (8)
  - ARTHRITIS [None]
  - BONE PAIN [None]
  - GASTRIC DISORDER [None]
  - HEADACHE [None]
  - OSTEOARTHRITIS [None]
  - PAIN [None]
  - PAIN IN EXTREMITY [None]
  - PERIPHERAL NERVE LESION [None]
